FAERS Safety Report 8517513-3 (Version None)
Quarter: 2012Q3

REPORT INFORMATION
  Report Type: 
  Country: None (occurrence: None)
  Receive Date: 20120718
  Receipt Date: 20120712
  Transmission Date: 20120928
  Serious: No
  Sender: FDA-Public Use
  Company Number: US-BAYER-2012-069875

PATIENT
  Sex: Male

DRUGS (1)
  1. NEXAVAR [Suspect]

REACTIONS (4)
  - BLISTER [None]
  - PALMAR-PLANTAR ERYTHRODYSAESTHESIA SYNDROME [None]
  - HYPERKERATOSIS [None]
  - SKIN DISCOLOURATION [None]
